FAERS Safety Report 5637343-X (Version None)
Quarter: 2008Q1

REPORT INFORMATION
  Report Type: 
  Country: None (occurrence: None)
  Receive Date: 20080225
  Receipt Date: 20080213
  Transmission Date: 20080703
  Serious: Yes (Hospitalization)
  Sender: FDA-Public Use
  Company Number: PT-PFIZER INC-2008014515

PATIENT
  Age: 19 Year
  Sex: Female

DRUGS (2)
  1. CYTOTEC [Suspect]
     Indication: ABORTION INDUCED
     Route: 048
     Dates: start: 20080209, end: 20080209
  2. CYTOTEC [Suspect]
     Route: 067
     Dates: start: 20080209, end: 20080209

REACTIONS (2)
  - ABORTION [None]
  - OFF LABEL USE [None]
